FAERS Safety Report 5507485-8 (Version None)
Quarter: 2007Q4

REPORT INFORMATION
  Report Type: 
  Country: None (occurrence: None)
  Receive Date: 20071102
  Receipt Date: 20071022
  Transmission Date: 20080405
  Serious: Yes (Disabling)
  Sender: FDA-Public Use
  Company Number: 2007AL004523

PATIENT
  Age: 83 Year

DRUGS (8)
  1. METFORMIN HYDROCHLORIDE [Suspect]
     Dosage: 500 MG;BID;PO
     Route: 048
     Dates: start: 20050908, end: 20060301
  2. FUROSEMIDE [Concomitant]
  3. DOSULEPIN [Concomitant]
  4. TOLTERODINE TARTRATE [Concomitant]
  5. SANDO-K [Concomitant]
  6. AMITRIPTYLINE HCL [Concomitant]
  7. CINNARIZINE [Concomitant]
  8. LEVOTHYROXINE SODIUM [Concomitant]

REACTIONS (1)
  - URTICARIA [None]
